FAERS Safety Report 11170174 (Version 4)
Quarter: 2015Q3

REPORT INFORMATION
  Report Type: Spontaneous
  Country: JP (occurrence: JP)
  Receive Date: 20150608
  Receipt Date: 20150824
  Transmission Date: 20151125
  Serious: Yes (Hospitalization)
  Sender: FDA-Public Use
  Company Number: JP-ROCHE-1576637

PATIENT
  Age: 7 Year
  Sex: Male
  Weight: 25 kg

DRUGS (24)
  1. ACTEMRA [Suspect]
     Active Substance: TOCILIZUMAB
     Indication: JUVENILE IDIOPATHIC ARTHRITIS
     Route: 041
     Dates: start: 20140407, end: 20140407
  2. LIMETHASON [Suspect]
     Active Substance: DEXAMETHASONE PALMITATE
     Indication: JUVENILE IDIOPATHIC ARTHRITIS
     Route: 042
     Dates: start: 20150402, end: 20150402
  3. PREDONINE [Suspect]
     Active Substance: PREDNISOLONE\PREDNISOLONE ACETATE\PREDNISOLONE SODIUM SUCCINATE
     Indication: JUVENILE IDIOPATHIC ARTHRITIS
     Route: 048
     Dates: start: 201501, end: 20150401
  4. PREDONINE [Suspect]
     Active Substance: PREDNISOLONE\PREDNISOLONE ACETATE\PREDNISOLONE SODIUM SUCCINATE
     Indication: JUVENILE IDIOPATHIC ARTHRITIS
     Dosage: IT IS 2015/5/22-2015/5 DURING ONCE/DAY OF 2015/5/9-2015/5/21 AND 15 ONCE/MG OF 2015/5/8-2015/5/8 AN
     Route: 048
     Dates: start: 20150402
  5. PREDNISOLONE SODIUM SUCCINATE [Suspect]
     Active Substance: PREDNISOLONE SODIUM SUCCINATE
     Route: 042
     Dates: start: 20150424
  6. KAYTWO [Concomitant]
     Active Substance: MENATETRENONE
     Indication: PROPHYLAXIS
     Route: 048
  7. TAPROS (JAPAN) [Concomitant]
     Indication: PROPHYLAXIS
     Route: 047
  8. ACTEMRA [Suspect]
     Active Substance: TOCILIZUMAB
     Indication: JUVENILE IDIOPATHIC ARTHRITIS
     Route: 041
     Dates: start: 20140724, end: 201408
  9. PREDONINE [Suspect]
     Active Substance: PREDNISOLONE\PREDNISOLONE ACETATE\PREDNISOLONE SODIUM SUCCINATE
     Indication: JUVENILE IDIOPATHIC ARTHRITIS
     Dosage: IT IS 2015/5/22-2015/5 DURING ONCE/DAY OF 2015/5/9-2015/5/21 AND 15 ONCE/MGX OF 2015/5/8-2015/5/8 AN
     Route: 048
     Dates: start: 20150508
  10. PREDONINE [Suspect]
     Active Substance: PREDNISOLONE\PREDNISOLONE ACETATE\PREDNISOLONE SODIUM SUCCINATE
     Indication: JUVENILE IDIOPATHIC ARTHRITIS
     Dosage: IT IS 2015/5/22-2015/5 DURING ONCE/DAY OF 2015/5/9-2015/5/21 AND 15 ONCE/MGX OF 2015/5/8-2015/5/8 AN
     Route: 048
     Dates: start: 20150509
  11. ZITHROMAC [Concomitant]
     Active Substance: AZITHROMYCIN DIHYDRATE
     Indication: BRONCHITIS
     Route: 048
     Dates: start: 20150331, end: 20150402
  12. FAMOTIDINE. [Concomitant]
     Active Substance: FAMOTIDINE
     Indication: PROPHYLAXIS
     Route: 048
     Dates: end: 20150508
  13. ACTEMRA [Suspect]
     Active Substance: TOCILIZUMAB
     Indication: JUVENILE IDIOPATHIC ARTHRITIS
     Route: 041
     Dates: start: 20140902
  14. ALFAROL [Concomitant]
     Active Substance: ALFACALCIDOL
     Indication: PROPHYLAXIS
     Route: 048
  15. NORVASC [Concomitant]
     Active Substance: AMLODIPINE BESYLATE
     Indication: PROPHYLAXIS
     Route: 048
     Dates: end: 20150508
  16. ALPHAGAN P [Concomitant]
     Active Substance: BRIMONIDINE TARTRATE
     Indication: PROPHYLAXIS
     Route: 047
  17. PREDNISOLONE SODIUM SUCCINATE [Suspect]
     Active Substance: PREDNISOLONE SODIUM SUCCINATE
     Indication: JUVENILE IDIOPATHIC ARTHRITIS
     Route: 042
     Dates: start: 20150414
  18. PREDNISOLONE SODIUM SUCCINATE [Suspect]
     Active Substance: PREDNISOLONE SODIUM SUCCINATE
     Dosage: 2015/5/8 : ONCE.
     Route: 042
     Dates: start: 20150503
  19. SODIUM PICOSULFATE [Concomitant]
     Active Substance: SODIUM PICOSULFATE
     Indication: PROPHYLAXIS
     Dosage: SINGLE DOSE: 7-10 DROPS AND PROPER USE?DRUG REPORTED AS: SODIUM PICOSULFATE HYDRATE
     Route: 048
     Dates: start: 201502
  20. AZOPT [Concomitant]
     Active Substance: BRINZOLAMIDE
     Indication: PROPHYLAXIS
     Route: 047
  21. MIKELAN LA [Concomitant]
     Active Substance: CARTEOLOL HYDROCHLORIDE
     Indication: PROPHYLAXIS
     Route: 047
  22. PREDONINE [Suspect]
     Active Substance: PREDNISOLONE\PREDNISOLONE ACETATE\PREDNISOLONE SODIUM SUCCINATE
     Indication: JUVENILE IDIOPATHIC ARTHRITIS
     Dosage: IT IS 2015/5/22-2015/5 DURING ONCE/DAY OF 2015/5/9-2015/5/21 AND 15 ONCE/MGX OF 2015/5/8-2015/5/8 AN
     Route: 048
     Dates: start: 20150522
  23. PREDNISOLONE SODIUM SUCCINATE [Suspect]
     Active Substance: PREDNISOLONE SODIUM SUCCINATE
     Dosage: 2015/4/19 : ONLY ONCE.
     Route: 042
     Dates: start: 20150418
  24. PREDNISOLONE SODIUM SUCCINATE [Suspect]
     Active Substance: PREDNISOLONE SODIUM SUCCINATE
     Route: 042
     Dates: start: 20150422

REACTIONS (2)
  - Hepatic enzyme increased [Not Recovered/Not Resolved]
  - Juvenile idiopathic arthritis [Recovered/Resolved]

NARRATIVE: CASE EVENT DATE: 20150402
